FAERS Safety Report 11302934 (Version 3)
Quarter: 2017Q2

REPORT INFORMATION
  Report Type: Report from Study
  Country: GB (occurrence: GB)
  Receive Date: 20150723
  Receipt Date: 20170414
  Transmission Date: 20170829
  Serious: Yes (Hospitalization, Other)
  Sender: FDA-Public Use
  Company Number: GB-AMGEN-GBRSP2015072194

PATIENT
  Age: 80 Year
  Sex: Male

DRUGS (2)
  1. ARANESP [Suspect]
     Active Substance: DARBEPOETIN ALFA
     Indication: PRODUCT USED FOR UNKNOWN INDICATION
     Dosage: 30 MUG, Q2WK
     Route: 065
  2. ARANESP [Suspect]
     Active Substance: DARBEPOETIN ALFA
     Dosage: 20 MUG, Q2WK
     Route: 065

REACTIONS (6)
  - Fluid retention [Unknown]
  - Myocardial infarction [Unknown]
  - Contusion [Unknown]
  - Fall [Unknown]
  - Urinary tract infection [Unknown]
  - Lower respiratory tract infection [Unknown]
